FAERS Safety Report 14754447 (Version 2)
Quarter: 2019Q1

REPORT INFORMATION
  Report Type: Spontaneous
  Country: US (occurrence: US)
  Receive Date: 20180412
  Receipt Date: 20190308
  Transmission Date: 20190417
  Serious: Yes (Hospitalization, Other)
  Sender: FDA-Public Use
  Company Number: US-ASTRAZENECA-2018SE43654

PATIENT
  Age: 834 Month
  Sex: Male

DRUGS (19)
  1. ONGLYZA [Suspect]
     Active Substance: SAXAGLIPTIN HYDROCHLORIDE
     Indication: TYPE 2 DIABETES MELLITUS
     Route: 048
     Dates: start: 20131008, end: 20170505
  2. KETOCONAZOLE. [Concomitant]
     Active Substance: KETOCONAZOLE
  3. CARVEDILOL. [Concomitant]
     Active Substance: CARVEDILOL
  4. KOMBIGLYZE XR [Suspect]
     Active Substance: METFORMIN HYDROCHLORIDE\SAXAGLIPTIN HYDROCHLORIDE
     Indication: TYPE 2 DIABETES MELLITUS
     Route: 048
     Dates: start: 20131008, end: 20170505
  5. CRESTOR [Concomitant]
     Active Substance: ROSUVASTATIN CALCIUM
  6. ATENOLOL. [Concomitant]
     Active Substance: ATENOLOL
  7. LOVAZA [Concomitant]
     Active Substance: OMEGA-3-ACID ETHYL ESTERS
  8. TRIAMCINOLONE ACETONIDE. [Concomitant]
     Active Substance: TRIAMCINOLONE ACETONIDE
  9. AZOR [Concomitant]
     Active Substance: AMLODIPINE BESYLATE\OLMESARTAN MEDOXOMIL
  10. XARELTO [Concomitant]
     Active Substance: RIVAROXABAN
  11. ACTOS [Concomitant]
     Active Substance: PIOGLITAZONE HYDROCHLORIDE
  12. DILANTIN [Concomitant]
     Active Substance: PHENYTOIN
  13. WARFARIN SODIUM. [Concomitant]
     Active Substance: WARFARIN SODIUM
  14. GLIPIZIDE. [Concomitant]
     Active Substance: GLIPIZIDE
  15. PLAVIX [Concomitant]
     Active Substance: CLOPIDOGREL BISULFATE
  16. ONGLYZA [Suspect]
     Active Substance: SAXAGLIPTIN HYDROCHLORIDE
     Indication: TYPE 2 DIABETES MELLITUS
     Dosage: 5.0MG UNKNOWN
     Route: 048
     Dates: start: 20131008, end: 20170702
  17. TEKTURNA [Concomitant]
     Active Substance: ALISKIREN HEMIFUMARATE
  18. AMLODIPINE BESYLATE. [Concomitant]
     Active Substance: AMLODIPINE BESYLATE
  19. MINOXIDIL. [Concomitant]
     Active Substance: MINOXIDIL

REACTIONS (4)
  - Coronary artery disease [Unknown]
  - Cardiac failure [Unknown]
  - Atrial fibrillation [Unknown]
  - Cardiac failure congestive [Unknown]

NARRATIVE: CASE EVENT DATE: 201410
